FAERS Safety Report 9812077 (Version 1)
Quarter: 2014Q1

REPORT INFORMATION
  Report Type: Spontaneous
  Country: US (occurrence: US)
  Receive Date: 20140111
  Receipt Date: 20140111
  Transmission Date: 20141002
  Serious: Yes (Death)
  Sender: FDA-Public Use
  Company Number: US-ASTRAZENECA-2014SE01807

PATIENT
  Age: 51 Year
  Sex: Female

DRUGS (7)
  1. ESOMEPRAZOLE [Suspect]
     Route: 048
  2. AMLODIPINE [Suspect]
     Route: 048
  3. CITALOPRAM [Suspect]
     Route: 048
  4. LAMOTRIGINE [Suspect]
     Route: 048
  5. RISPERIDONE [Suspect]
     Route: 048
  6. NALTREXONE [Suspect]
     Route: 048
  7. LEVOTHYROXINE [Suspect]
     Route: 048

REACTIONS (2)
  - Toxicity to various agents [Fatal]
  - Completed suicide [Fatal]
